FAERS Safety Report 6433046-2 (Version None)
Quarter: 2009Q4

REPORT INFORMATION
  Report Type: 
  Country: None (occurrence: None)
  Receive Date: 20091109
  Receipt Date: 20091102
  Transmission Date: 20100525
  Serious: Yes (Death)
  Sender: FDA-Public Use
  Company Number: DE-ELI_LILLY_AND_COMPANY-DE200911000698

PATIENT
  Age: 53 Year
  Sex: Male

DRUGS (2)
  1. GEMCITABINE HCL [Suspect]
     Indication: MYCOSIS FUNGOIDES
     Dosage: 1000 MG/M2, DAYS 1, 8, AND 15 OF A 28-DAYS COURSE.
     Route: 065
  2. GEMCITABINE HCL [Suspect]
     Dosage: 250 MG/M2, WEEKLY (1/W)
     Route: 065

REACTIONS (2)
  - METASTASES TO MENINGES [None]
  - PYREXIA [None]
